FAERS Safety Report 23598891 (Version 1)
Quarter: 2024Q1

REPORT INFORMATION
  Report Type: Spontaneous
  Country: PL (occurrence: PL)
  Receive Date: 20240306
  Receipt Date: 20240306
  Transmission Date: 20240410
  Serious: Yes (Other)
  Sender: FDA-Public Use
  Company Number: PL-SANDOZ-SDZ2024PL022297

PATIENT
  Age: 62 Year
  Sex: Female

DRUGS (1)
  1. METHOTREXATE [Suspect]
     Active Substance: METHOTREXATE
     Indication: Psoriasis
     Dosage: DAILY
     Route: 065

REACTIONS (3)
  - Urogenital haemorrhage [Unknown]
  - Necrosis [Unknown]
  - Mouth haemorrhage [Unknown]
